FAERS Safety Report 13099240 (Version 2)
Quarter: 2017Q1

REPORT INFORMATION
  Report Type: Report from Study
  Country: MX (occurrence: MX)
  Receive Date: 20170109
  Receipt Date: 20170116
  Transmission Date: 20170428
  Serious: Yes (Hospitalization)
  Sender: FDA-Public Use
  Company Number: PHHY2017MX001870

PATIENT
  Age: 74 Year
  Sex: Female

DRUGS (4)
  1. ULTIBRO BREEZHALER [Suspect]
     Active Substance: GLYCOPYRRONIUM\INDACATEROL
     Indication: LUNG DISORDER
     Dosage: 1 DF(110UG/ 50 UG), QD (1 YEAR AND 7 MONTHS AGO)
     Route: 055
  2. AMBROXOL [Concomitant]
     Active Substance: AMBROXOL
     Indication: PRODUCT USED FOR UNKNOWN INDICATION
  3. COMBIVENT [Concomitant]
     Active Substance: ALBUTEROL SULFATE\IPRATROPIUM BROMIDE
     Indication: BRONCHIAL DISORDER
     Dosage: 6 YEARS AGO
     Route: 055
  4. ULTIBRO BREEZHALER [Suspect]
     Active Substance: GLYCOPYRRONIUM\INDACATEROL
     Indication: ASTHMA

REACTIONS (6)
  - Influenza [Recovered/Resolved]
  - Dyspnoea [Recovered/Resolved]
  - Product use issue [Not Recovered/Not Resolved]
  - Throat tightness [Recovered/Resolved]
  - General physical health deterioration [Unknown]
  - Asthmatic crisis [Recovered/Resolved]

NARRATIVE: CASE EVENT DATE: 201611
